FAERS Safety Report 6197142-X (Version None)
Quarter: 2009Q2

REPORT INFORMATION
  Report Type: 
  Country: None (occurrence: None)
  Receive Date: 20090520
  Receipt Date: 20090515
  Transmission Date: 20091009
  Serious: Yes (Hospitalization, Other)
  Sender: FDA-Public Use
  Company Number: PL-BRISTOL-MYERS SQUIBB COMPANY-14626840

PATIENT
  Age: 48 Year
  Sex: Female

DRUGS (3)
  1. DASATINIB [Suspect]
     Indication: ACUTE LYMPHOCYTIC LEUKAEMIA
     Dates: start: 20070901, end: 20090101
  2. CYCLOPHOSPHAMIDE [Suspect]
     Dates: start: 20060601
  3. RADIATION THERAPY [Suspect]
     Dosage: 1 DF-12 GY, TOTAL BODY IRRADIATION
     Dates: start: 20060601

REACTIONS (10)
  - DYSPNOEA [None]
  - EXERCISE TOLERANCE DECREASED [None]
  - FEBRILE NEUTROPENIA [None]
  - GRAFT VERSUS HOST DISEASE [None]
  - NAUSEA [None]
  - OEDEMA PERIPHERAL [None]
  - PLEURAL EFFUSION [None]
  - STOMATITIS [None]
  - TACHYCARDIA [None]
  - VOMITING [None]
